FAERS Safety Report 18100479 (Version 1)
Quarter: 2020Q3

REPORT INFORMATION
  Report Type: Report from Study
  Country: CA (occurrence: CA)
  Receive Date: 20200731
  Receipt Date: 20200731
  Transmission Date: 20201103
  Serious: Yes (Hospitalization)
  Sender: FDA-Public Use
  Company Number: CA-TOLMAR, INC.-19CA000183

PATIENT
  Age: 62 Year
  Sex: Male
  Weight: 114 kg

DRUGS (4)
  1. ABIRATERONE. [Concomitant]
     Active Substance: ABIRATERONE ACETATE
     Dosage: 1000 MG, QD
     Route: 048
     Dates: start: 20190608
  2. ELIGARD [Suspect]
     Active Substance: LEUPROLIDE ACETATE
     Indication: PRODUCT USED FOR UNKNOWN INDICATION
     Dosage: 22.5 MG EVERY 3 MONTHS
     Route: 058
     Dates: start: 20190522
  3. PREDNISONE. [Concomitant]
     Active Substance: PREDNISONE
     Dosage: 5 MG, BID
     Route: 048
     Dates: start: 20190608
  4. CEPHALEXIN [CEFALEXIN] [Concomitant]
     Active Substance: CEPHALEXIN
     Indication: POST PROCEDURAL INFECTION
     Dosage: 500 MG, QID
     Route: 048
     Dates: start: 20190711, end: 20190820

REACTIONS (1)
  - Post procedural infection [Recovered/Resolved]

NARRATIVE: CASE EVENT DATE: 20190820
